FAERS Safety Report 4690556-6 (Version None)
Quarter: 2005Q2

REPORT INFORMATION
  Report Type: 
  Country: None (occurrence: None)
  Receive Date: 20050615
  Receipt Date: 20050531
  Transmission Date: 20051028
  Serious: Yes (Other)
  Sender: FDA-Public Use
  Company Number: AU-MERCK-0506AUS00129

PATIENT
  Age: 42 Year
  Sex: Male

DRUGS (1)
  1. VIOXX [Suspect]
     Route: 048
     Dates: start: 20020101, end: 20041001

REACTIONS (1)
  - MYOCARDIAL INFARCTION [None]
